FAERS Safety Report 6253251-8 (Version None)
Quarter: 2009Q3

REPORT INFORMATION
  Report Type: 
  Country: None (occurrence: None)
  Receive Date: 20090701
  Receipt Date: 20090624
  Transmission Date: 20100115
  Serious: Yes (Other)
  Sender: FDA-Public Use
  Company Number: US-AMGEN-QUU353097

PATIENT
  Sex: Female

DRUGS (2)
  1. ENBREL [Suspect]
     Indication: RHEUMATOID ARTHRITIS
     Route: 058
     Dates: start: 20070213
  2. METHOTREXATE [Concomitant]
     Route: 048

REACTIONS (3)
  - ASTHENIA [None]
  - FACIAL PALSY [None]
  - HERPES ZOSTER [None]
